FAERS Safety Report 8196187-8 (Version None)
Quarter: 2012Q1

REPORT INFORMATION
  Report Type: 
  Country: None (occurrence: None)
  Receive Date: 20120306
  Receipt Date: 20120221
  Transmission Date: 20120608
  Serious: Yes (Life-Threatening)
  Sender: FDA-Public Use
  Company Number: HALO20120005

PATIENT
  Age: 92 Year
  Sex: Female

DRUGS (6)
  1. BENSERAZIDE [Concomitant]
  2. BISOPROLOL FUMARATE [Concomitant]
  3. AMANTADINE HCL [Concomitant]
  4. LEVODOPA [Concomitant]
  5. HALOPERIDOL [Suspect]
     Indication: AGITATION
     Dosage: 0.6 MG, ORAL
     Route: 048
  6. HALOPERIDOL [Suspect]
     Indication: RESTLESSNESS
     Dosage: 0.6 MG, ORAL
     Route: 048

REACTIONS (2)
  - TORSADE DE POINTES [None]
  - ATRIOVENTRICULAR BLOCK [None]
